FAERS Safety Report 7031557-2 (Version None)
Quarter: 2010Q4

REPORT INFORMATION
  Report Type: 
  Country: None (occurrence: None)
  Receive Date: 20101006
  Receipt Date: 20101006
  Transmission Date: 20110411
  Serious: No
  Sender: FDA-Public Use
  Company Number: None

PATIENT
  Age: 15 Month
  Sex: Female
  Weight: 9.0719 kg

DRUGS (1)
  1. SINGULAIR [Suspect]

REACTIONS (2)
  - INSOMNIA [None]
  - RESTLESSNESS [None]
